FAERS Safety Report 11050891 (Version 1)
Quarter: 2015Q2

REPORT INFORMATION
  Report Type: Report from Study
  Country: US (occurrence: None)
  Receive Date: 20150417
  Receipt Date: 20150417
  Transmission Date: 20150821
  Serious: Yes (Other)
  Sender: FDA-Public Use
  Company Number: US2015GSK051467

PATIENT
  Age: 56 Year
  Sex: Male
  Weight: 93 kg

DRUGS (11)
  1. HYDROCORTISONE CREAM (HYDROCORTISONE) [Concomitant]
  2. RALTEGRAVIR [Concomitant]
     Active Substance: RALTEGRAVIR
  3. LISINOPRIL. [Concomitant]
     Active Substance: LISINOPRIL
  4. MARAVIROC (MARAVIROC) UNKNOWN [Suspect]
     Active Substance: MARAVIROC
     Dates: start: 20111212
  5. TRUVADA [Concomitant]
     Active Substance: EMTRICITABINE\TENOFOVIR DISOPROXIL FUMARATE
  6. NORVIR [Concomitant]
     Active Substance: RITONAVIR
  7. VIAGRA [Concomitant]
     Active Substance: SILDENAFIL CITRATE
  8. TESTOSTERONE. [Concomitant]
     Active Substance: TESTOSTERONE
  9. MULTIVITAMIN (VITAMINS NOS) [Concomitant]
     Active Substance: VITAMINS
  10. DARUNAVIR [Concomitant]
     Active Substance: DARUNAVIR
  11. ACICLOVIR [Concomitant]
     Active Substance: ACYCLOVIR

REACTIONS (1)
  - Anal cancer stage 0 [None]

NARRATIVE: CASE EVENT DATE: 20140827
